FAERS Safety Report 9802467 (Version 2)
Quarter: 2014Q1

REPORT INFORMATION
  Report Type: Spontaneous
  Country: GB (occurrence: GB)
  Receive Date: 20140107
  Receipt Date: 20140127
  Transmission Date: 20141002
  Serious: Yes (Other)
  Sender: FDA-Public Use
  Company Number: PHHY2014GB000460

PATIENT
  Sex: Female

DRUGS (3)
  1. CEFUROXIME [Suspect]
     Indication: VITRECTOMY
     Dosage: 1 MG IN 0.1 ML
     Route: 065
     Dates: start: 20130715, end: 20130715
  2. ALENDRONIC ACID [Concomitant]
     Indication: PRODUCT USED FOR UNKNOWN INDICATION
  3. LANSOPRAZOLE [Concomitant]
     Indication: PRODUCT USED FOR UNKNOWN INDICATION

REACTIONS (2)
  - Toxic anterior segment syndrome [Recovered/Resolved]
  - Hypopyon [Recovered/Resolved]
